FAERS Safety Report 5745903-0 (Version None)
Quarter: 2008Q2

REPORT INFORMATION
  Report Type: 
  Country: None (occurrence: None)
  Receive Date: 20080520
  Receipt Date: 20080506
  Transmission Date: 20081010
  Serious: Yes (Other)
  Sender: FDA-Public Use
  Company Number: 2008US001295

PATIENT
  Age: 58 Year
  Sex: Female
  Weight: 103.9 kg

DRUGS (13)
  1. PROGRAF [Suspect]
     Indication: RENAL TRANSPLANT
     Dates: start: 20000828
  2. PROCRIT [Suspect]
     Indication: NEPHROGENIC ANAEMIA
     Dosage: 20000 IU, 3XWEEKLY, SUBCUTANEOUS, 20000 IU, 19000 IU
     Route: 058
     Dates: start: 20051207, end: 20060404
  3. PROCRIT [Suspect]
     Indication: NEPHROGENIC ANAEMIA
     Dosage: 20000 IU, 3XWEEKLY, SUBCUTANEOUS, 20000 IU, 19000 IU
     Route: 058
     Dates: start: 20060404, end: 20070807
  4. PROCRIT [Suspect]
     Indication: NEPHROGENIC ANAEMIA
     Dosage: 20000 IU, 3XWEEKLY, SUBCUTANEOUS, 20000 IU, 19000 IU
     Route: 058
     Dates: start: 20070807
  5. AZATHIOPRINE [Suspect]
     Indication: DRUG USE FOR UNKNOWN INDICATION
     Dates: start: 20000118
  6. QUINIDINE (QUINIDINE BISULFATE) [Concomitant]
  7. ZOLPIDEM TARTRATE [Concomitant]
  8. PREDNISOLONE ACETATE [Concomitant]
  9. ZOPICLONE (ZOPICLONE) [Concomitant]
  10. PRAVASTATIN [Concomitant]
  11. CITALOPRAM (CITALOPRAM HYDROCHLORIDE) [Concomitant]
  12. FINASTERIDE [Concomitant]
  13. ESTRADIOL (ESTRADIOL VALERATE) [Concomitant]

REACTIONS (3)
  - DRUG INEFFECTIVE [None]
  - MEAN CELL VOLUME INCREASED [None]
  - THERAPEUTIC RESPONSE DECREASED [None]
